FAERS Safety Report 9718879 (Version 3)
Quarter: 2013Q4

REPORT INFORMATION
  Report Type: Spontaneous
  Country: FI (occurrence: FI)
  Receive Date: 20131127
  Receipt Date: 20131223
  Transmission Date: 20140711
  Serious: Yes (Other)
  Sender: FDA-Public Use
  Company Number: FI-BAXTER-2013BAX046838

PATIENT
  Age: 63 Year
  Sex: Male

DRUGS (2)
  1. NATRIUMKLORID BAXTER 9 MG/ML INFUUSIONESTE, LIUOS [Suspect]
     Indication: HAEMODIALYSIS
     Route: 065
  2. MAREVAN [Concomitant]
     Indication: PRODUCT USED FOR UNKNOWN INDICATION
     Route: 065

REACTIONS (6)
  - Heart rate irregular [Unknown]
  - Malaise [Unknown]
  - Haemolysis [Unknown]
  - Anaemia [Unknown]
  - C-reactive protein increased [Unknown]
  - Hypotension [Unknown]
